FAERS Safety Report 8430129-2 (Version None)
Quarter: 2012Q2

REPORT INFORMATION
  Report Type: 
  Country: None (occurrence: None)
  Receive Date: 20120612
  Receipt Date: 20120606
  Transmission Date: 20120825
  Serious: Yes (Other)
  Sender: FDA-Public Use
  Company Number: FR-MERCK-1205FRA00038

PATIENT
  Age: 54 Year
  Sex: Female

DRUGS (14)
  1. CYCLOPHOSPHAMIDE [Suspect]
     Indication: BREAST CANCER
     Route: 042
     Dates: start: 20120403
  2. METOCLOPRAMIDE HCL [Suspect]
     Indication: CHEMOTHERAPY
     Route: 042
     Dates: start: 20120403
  3. EMEND [Suspect]
     Indication: PROPHYLAXIS
     Route: 048
     Dates: start: 20120403, end: 20120403
  4. FLUOROURACIL [Suspect]
     Indication: CHEMOTHERAPY
     Route: 042
     Dates: start: 20120403
  5. EPIRUBICIN HYDROCHLORIDE [Suspect]
     Indication: BREAST CANCER
     Route: 042
     Dates: start: 20120403
  6. EPIRUBICIN HYDROCHLORIDE [Suspect]
     Indication: CHEMOTHERAPY
     Route: 042
     Dates: start: 20120403
  7. EMEND [Suspect]
     Route: 048
     Dates: start: 20120404, end: 20120405
  8. TINZAPARIN SODIUM [Concomitant]
     Indication: THROMBOSIS
     Route: 065
     Dates: start: 20120327
  9. PREDNISOLONE SODIUM METAZOATE [Suspect]
     Route: 048
     Dates: start: 20120403, end: 20120403
  10. CYCLOPHOSPHAMIDE [Suspect]
     Indication: CHEMOTHERAPY
     Route: 042
     Dates: start: 20120403
  11. EMEND [Suspect]
     Route: 048
     Dates: start: 20120404, end: 20120405
  12. ONDANSETRON HCL [Suspect]
     Indication: PROPHYLAXIS
     Route: 048
     Dates: start: 20120403, end: 20120404
  13. EMEND [Suspect]
     Indication: PROPHYLAXIS OF NAUSEA AND VOMITING
     Route: 048
     Dates: start: 20120403, end: 20120403
  14. FLUOROURACIL [Suspect]
     Indication: BREAST CANCER
     Route: 042
     Dates: start: 20120403

REACTIONS (5)
  - POLLAKIURIA [None]
  - HAEMATURIA [None]
  - MOTOR DYSFUNCTION [None]
  - MUSCULAR WEAKNESS [None]
  - ASTHENIA [None]
